FAERS Safety Report 6504204-3 (Version None)
Quarter: 2009Q4

REPORT INFORMATION
  Report Type: 
  Country: None (occurrence: None)
  Receive Date: 20091217
  Receipt Date: 20091207
  Transmission Date: 20100525
  Serious: Yes (Hospitalization, Other)
  Sender: FDA-Public Use
  Company Number: PHHY2009CN55014

PATIENT
  Age: 2 Year
  Sex: Male
  Weight: 12 kg

DRUGS (5)
  1. TEGRETOL [Suspect]
     Indication: EPILEPSY
     Dosage: 0.1 G, BID
     Route: 048
     Dates: start: 20080816, end: 20080908
  2. PENICILLIN VK [Concomitant]
  3. RIBAVIRIN [Concomitant]
  4. VALPROATE SODIUM [Concomitant]
  5. ERYTHROMYCIN [Concomitant]

REACTIONS (11)
  - ALANINE AMINOTRANSFERASE INCREASED [None]
  - BREATH SOUNDS ABNORMAL [None]
  - CHOKING SENSATION [None]
  - DRUG RASH WITH EOSINOPHILIA AND SYSTEMIC SYMPTOMS [None]
  - ERYTHEMA [None]
  - LYMPHADENOPATHY [None]
  - PALPATORY FINDING ABNORMAL [None]
  - PRURITUS [None]
  - PYREXIA [None]
  - RASH [None]
  - UPPER RESPIRATORY TRACT INFECTION [None]
